FAERS Safety Report 7807327-1 (Version None)
Quarter: 2011Q4

REPORT INFORMATION
  Report Type: 
  Country: None (occurrence: None)
  Receive Date: 20111011
  Receipt Date: 20110929
  Transmission Date: 20120403
  Serious: Yes (Hospitalization)
  Sender: FDA-Public Use
  Company Number: US-BRISTOL-MYERS SQUIBB COMPANY-16114514

PATIENT
  Age: 63 Year
  Sex: Female
  Weight: 65 kg

DRUGS (5)
  1. GLUCOPHAGE [Suspect]
     Indication: TYPE 2 DIABETES MELLITUS
  2. XANAX [Concomitant]
     Indication: DEPRESSION
  3. FENTANYL-100 [Concomitant]
     Indication: PAIN
     Dosage: STARTED 5YRS AGO
  4. LEXAPRO [Suspect]
  5. WELLBUTRIN [Concomitant]

REACTIONS (6)
  - HALLUCINATION [None]
  - BLOOD GLUCOSE INCREASED [None]
  - NAUSEA [None]
  - FALL [None]
  - MUSCULOSKELETAL CHEST PAIN [None]
  - ABDOMINAL PAIN UPPER [None]
